FAERS Safety Report 21885117 (Version 1)
Quarter: 2023Q1

REPORT INFORMATION
  Report Type: Spontaneous
  Country: FI (occurrence: FI)
  Receive Date: 20230119
  Receipt Date: 20230119
  Transmission Date: 20230418
  Serious: Yes (Hospitalization)
  Sender: FDA-Public Use
  Company Number: FI-BRISTOL-MYERS SQUIBB COMPANY-2022-147097

PATIENT
  Age: 79 Year
  Sex: Male
  Weight: 69 kg

DRUGS (4)
  1. ELIQUIS [Suspect]
     Active Substance: APIXABAN
     Indication: Pulmonary embolism
     Dosage: 2 TABLETS/DAILY (MORNING AND EVENING)
     Dates: start: 20220529, end: 20220603
  2. ELIQUIS [Suspect]
     Active Substance: APIXABAN
     Dosage: 5MG 1 TABLET 2X/DAY
     Dates: start: 20220604, end: 20220828
  3. AVODART [Concomitant]
     Active Substance: DUTASTERIDE
     Indication: Product used for unknown indication
     Dates: start: 20200911
  4. ALBUTEROL SULFATE [Concomitant]
     Active Substance: ALBUTEROL SULFATE
     Indication: Dyspnoea

REACTIONS (1)
  - Insomnia [Recovering/Resolving]

NARRATIVE: CASE EVENT DATE: 20220530
